FAERS Safety Report 21453722 (Version 1)
Quarter: 2022Q4

REPORT INFORMATION
  Report Type: Spontaneous
  Country: AT (occurrence: AT)
  Receive Date: 20221013
  Receipt Date: 20221013
  Transmission Date: 20230113
  Serious: Yes (Other)
  Sender: FDA-Public Use
  Company Number: AT-BAXTER-2022BAX021334

PATIENT
  Sex: Female

DRUGS (2)
  1. DOXORUBICIN HYDROCHLORIDE [Suspect]
     Active Substance: DOXORUBICIN HYDROCHLORIDE
     Indication: Sarcoma metastatic
     Dosage: LMS04 REGIMEN
     Route: 065
  2. YONDELIS [Suspect]
     Active Substance: TRABECTEDIN
     Indication: Sarcoma metastatic
     Dosage: LMS04 REGIMEN: 1.1 MG, 6 CYCLES, THEN YONDELIS 4 CYCLES MAINTENANCE THERAPY
     Route: 042

REACTIONS (2)
  - Lung opacity [Unknown]
  - Pneumonia [Unknown]
